FAERS Safety Report 11546048 (Version 4)
Quarter: 2020Q2

REPORT INFORMATION
  Report Type: Spontaneous
  Country: IN (occurrence: IN)
  Receive Date: 20150924
  Receipt Date: 20200424
  Transmission Date: 20200713
  Serious: Yes (Hospitalization)
  Sender: FDA-Public Use
  Company Number: IN-JNJFOC-20150913268

PATIENT
  Age: 45 Year
  Sex: Male

DRUGS (4)
  1. METHYLPREDNISOLONE. [Interacting]
     Active Substance: METHYLPREDNISOLONE
     Indication: BRONCHIECTASIS
  2. SPORANOX [Suspect]
     Active Substance: ITRACONAZOLE
     Indication: BRONCHIECTASIS
  3. SPORANOX [Suspect]
     Active Substance: ITRACONAZOLE
     Indication: BRONCHOPULMONARY ASPERGILLOSIS ALLERGIC
     Route: 048
  4. METHYLPREDNISOLONE. [Interacting]
     Active Substance: METHYLPREDNISOLONE
     Indication: BRONCHOPULMONARY ASPERGILLOSIS ALLERGIC
     Route: 048

REACTIONS (2)
  - Drug interaction [Recovering/Resolving]
  - Bronchopulmonary aspergillosis [Recovering/Resolving]
